FAERS Safety Report 10175625 (Version 1)
Quarter: 2014Q2

REPORT INFORMATION
  Report Type: Report from Study
  Country: US (occurrence: US)
  Receive Date: 20140516
  Receipt Date: 20140516
  Transmission Date: 20141212
  Serious: Yes (Hospitalization)
  Sender: FDA-Public Use
  Company Number: US-BIOGENIDEC-2014BI044237

PATIENT
  Age: 59 Year
  Sex: Female

DRUGS (2)
  1. TYSABRI [Suspect]
     Indication: MULTIPLE SCLEROSIS
     Route: 042
     Dates: start: 20080317, end: 20100811
  2. TYSABRI [Suspect]
     Indication: MULTIPLE SCLEROSIS
     Route: 042
     Dates: start: 20110831

REACTIONS (4)
  - Aneurysm [Not Recovered/Not Resolved]
  - Pneumonia [Not Recovered/Not Resolved]
  - Convulsion [Not Recovered/Not Resolved]
  - Cerebrovascular accident [Not Recovered/Not Resolved]
